FAERS Safety Report 4326496-1 (Version None)
Quarter: 2004Q1

REPORT INFORMATION
  Report Type: 
  Country: None (occurrence: None)
  Receive Date: 20040329
  Receipt Date: 20040329
  Transmission Date: 20041129
  Serious: Yes (Other)
  Sender: FDA-Public Use
  Company Number: None

PATIENT
  Age: 58 Year
  Sex: Female
  Weight: 86.1834 kg

DRUGS (8)
  1. PAXIL [Suspect]
     Indication: DEPRESSION
     Dosage: 10MG 1 DAILY ORAL
     Route: 048
     Dates: start: 19970116, end: 19980618
  2. CELEXA [Suspect]
     Indication: DEPRESSION
     Dosage: 20 MG 1 DAILY ORAL
     Route: 048
     Dates: start: 20020613, end: 20030517
  3. NOLVADEX [Concomitant]
  4. SEREVENT [Concomitant]
  5. WELLBUTRIN W/ PAXIL [Concomitant]
  6. XANAX [Concomitant]
  7. ALBUTEROL [Concomitant]
  8. CIPRO [Concomitant]

REACTIONS (11)
  - ANGER [None]
  - ANGIOPATHY [None]
  - ARTHRALGIA [None]
  - CONDITION AGGRAVATED [None]
  - CRYING [None]
  - DEPRESSION [None]
  - GINGIVAL BLEEDING [None]
  - PARANOIA [None]
  - PULMONARY CONGESTION [None]
  - SUICIDAL IDEATION [None]
  - TREMOR [None]
